FAERS Safety Report 6753993-1 (Version None)
Quarter: 2010Q2

REPORT INFORMATION
  Report Type: 
  Country: None (occurrence: None)
  Receive Date: 20100603
  Receipt Date: 20100524
  Transmission Date: 20101027
  Serious: Yes (Hospitalization)
  Sender: FDA-Public Use
  Company Number: B0501237A

PATIENT
  Sex: Female
  Weight: 63 kg

DRUGS (1)
  1. NARAMIG [Suspect]
     Indication: MIGRAINE
     Dosage: 2.5MG UNKNOWN
     Route: 048
     Dates: start: 19990101, end: 20070516

REACTIONS (13)
  - ABDOMINAL PAIN [None]
  - ATROPHY [None]
  - COLITIS ISCHAEMIC [None]
  - DIARRHOEA HAEMORRHAGIC [None]
  - EMOTIONAL DISTRESS [None]
  - EXTRAVASATION [None]
  - GASTROINTESTINAL DISORDER [None]
  - HAEMATOCHEZIA [None]
  - MUCOSAL ULCERATION [None]
  - MUSCLE SPASMS [None]
  - NAUSEA [None]
  - OEDEMA MUCOSAL [None]
  - RECTAL HAEMORRHAGE [None]
